FAERS Safety Report 9478997 (Version 2)
Quarter: 2014Q1

REPORT INFORMATION
  Report Type: Spontaneous
  Country: ES (occurrence: None)
  Receive Date: 20130822
  Receipt Date: 20140225
  Transmission Date: 20141002
  Serious: Yes (Other)
  Sender: FDA-Public Use
  Company Number: NGX_01933_2013

PATIENT
  Age: 49 Year
  Sex: 0
  Weight: 75 kg

DRUGS (4)
  1. QUTENZA [Suspect]
     Indication: NEUROPATHY PERIPHERAL
     Dosage: PATCH, 3 MONTHS
     Route: 061
     Dates: start: 20130221, end: 20130221
  2. PARACETAMOL [Concomitant]
  3. METAMIZOLE [Concomitant]
  4. ESCITALOPRAM [Concomitant]

REACTIONS (2)
  - Drug administration error [None]
  - Incorrect drug administration duration [None]
